FAERS Safety Report 9359437 (Version 1)
Quarter: 2013Q2

REPORT INFORMATION
  Report Type: Spontaneous
  Country: US (occurrence: US)
  Receive Date: 20130620
  Receipt Date: 20130620
  Transmission Date: 20140414
  Serious: No
  Sender: FDA-Public Use
  Company Number: US-US-EMD SERONO, INC.-7172670

PATIENT
  Sex: Male

DRUGS (3)
  1. REBIF [Suspect]
     Indication: PRODUCT USED FOR UNKNOWN INDICATION
     Route: 058
     Dates: start: 201210
  2. REBIF [Suspect]
  3. REBIF [Suspect]

REACTIONS (4)
  - Decreased appetite [Unknown]
  - Arthralgia [Unknown]
  - Influenza like illness [Unknown]
  - Fatigue [Unknown]
